FAERS Safety Report 23024086 (Version 2)
Quarter: 2024Q2

REPORT INFORMATION
  Report Type: Spontaneous
  Country: US (occurrence: US)
  Receive Date: 20231004
  Receipt Date: 20240625
  Transmission Date: 20240716
  Serious: No
  Sender: FDA-Public Use
  Company Number: US-SA-SAC20230928000746

PATIENT
  Age: 66 Year
  Sex: Female
  Weight: 66.6 kg

DRUGS (1)
  1. DUPIXENT [Suspect]
     Active Substance: DUPILUMAB
     Indication: Dermatitis atopic
     Dosage: 300 MG, QOW
     Route: 058
     Dates: start: 20230523

REACTIONS (7)
  - Exposure to allergen [Unknown]
  - Dermatitis atopic [Unknown]
  - Rebound atopic dermatitis [Unknown]
  - Atrial septal defect [Unknown]
  - Pruritus [Unknown]
  - Intentional dose omission [Unknown]
  - Inappropriate schedule of product administration [Unknown]

NARRATIVE: CASE EVENT DATE: 20230101
